FAERS Safety Report 9753541 (Version 7)
Quarter: 2015Q1

REPORT INFORMATION
  Report Type: Spontaneous
  Country: DK (occurrence: None)
  Receive Date: 20131211
  Receipt Date: 20150107
  Transmission Date: 20150721
  Serious: Yes (Hospitalization)
  Sender: FDA-Public Use
  Company Number: 2013038805

PATIENT
  Age: 49 Year
  Sex: Female
  Weight: 86 kg

DRUGS (1)
  1. STIMATE [Suspect]
     Active Substance: DESMOPRESSIN ACETATE
     Indication: VON WILLEBRAND^S DISEASE
     Dosage: NASAL
     Route: 045

REACTIONS (3)
  - Cardiac failure congestive [None]
  - Bronchitis [None]
  - Pneumonia [None]

NARRATIVE: CASE EVENT DATE: 201311
